FAERS Safety Report 14889843 (Version 1)
Quarter: 2018Q2

REPORT INFORMATION
  Report Type: Spontaneous
  Country: US (occurrence: US)
  Receive Date: 20180426
  Receipt Date: 20180426
  Transmission Date: 20180711
  Serious: Yes (Hospitalization)
  Sender: FDA-Public Use
  Company Number: None

PATIENT
  Age: 50 Year
  Sex: Female
  Weight: 64 kg

DRUGS (1)
  1. XELODA [Suspect]
     Active Substance: CAPECITABINE
     Dates: end: 20161006

REACTIONS (4)
  - Nausea [None]
  - Abdominal pain [None]
  - Small intestinal obstruction [None]
  - Intestinal ischaemia [None]

NARRATIVE: CASE EVENT DATE: 20180325
